FAERS Safety Report 4917748-2 (Version None)
Quarter: 2006Q1

REPORT INFORMATION
  Report Type: 
  Country: None (occurrence: None)
  Receive Date: 20060221
  Receipt Date: 20060209
  Transmission Date: 20060701
  Serious: Yes (Hospitalization)
  Sender: FDA-Public Use
  Company Number: DE-BRISTOL-MYERS SQUIBB COMPANY-13278700

PATIENT
  Age: 59 Year
  Sex: Female

DRUGS (3)
  1. CETUXIMAB [Suspect]
     Indication: SQUAMOUS CELL CARCINOMA
     Route: 041
     Dates: start: 20051213
  2. CARBOPLATIN [Suspect]
     Indication: SQUAMOUS CELL CARCINOMA
     Route: 042
     Dates: start: 20051213
  3. FLUOROURACIL [Suspect]
     Indication: SQUAMOUS CELL CARCINOMA
     Route: 042
     Dates: start: 20051213

REACTIONS (2)
  - DYSPNOEA AT REST [None]
  - PNEUMONIA [None]
